FAERS Safety Report 7735152-9 (Version None)
Quarter: 2011Q3

REPORT INFORMATION
  Report Type: 
  Country: None (occurrence: None)
  Receive Date: 20110907
  Receipt Date: 20110830
  Transmission Date: 20111222
  Serious: Yes (Other)
  Sender: FDA-Public Use
  Company Number: GB-ABBOTT-11P-167-0842145-00

PATIENT
  Sex: Male

DRUGS (3)
  1. HUMIRA [Suspect]
     Indication: PSORIASIS
     Route: 058
     Dates: start: 20100417, end: 20110726
  2. METHOTREXATE [Concomitant]
     Indication: PSORIASIS
     Route: 048
     Dates: start: 20090401
  3. CICLOPORIN [Concomitant]
     Indication: PSORIASIS
     Dates: start: 20070101, end: 20090101

REACTIONS (2)
  - PROSTATE CANCER [None]
  - PROSTATIC SPECIFIC ANTIGEN INCREASED [None]
